FAERS Safety Report 17361929 (Version 1)
Quarter: 2020Q1

REPORT INFORMATION
  Report Type: Spontaneous
  Country: US (occurrence: US)
  Receive Date: 20200131
  Receipt Date: 20200131
  Transmission Date: 20200409
  Serious: Yes (Hospitalization)
  Sender: FDA-Public Use
  Company Number: None

PATIENT
  Sex: Female

DRUGS (14)
  1. HIBICLENS [Concomitant]
     Active Substance: CHLORHEXIDINE GLUCONATE
  2. LATANOPROST. [Concomitant]
     Active Substance: LATANOPROST
  3. BRIMONIDINE [Concomitant]
     Active Substance: BRIMONIDINE TARTRATE
  4. OMEPRAZOLE. [Concomitant]
     Active Substance: OMEPRAZOLE
  5. CEPHALEXIN. [Concomitant]
     Active Substance: CEPHALEXIN
  6. NOVOLOG [Concomitant]
     Active Substance: INSULIN ASPART
  7. LANTUS [Concomitant]
     Active Substance: INSULIN GLARGINE
  8. TIMOLOL. [Concomitant]
     Active Substance: TIMOLOL
  9. REPATHA [Suspect]
     Active Substance: EVOLOCUMAB
     Indication: HYPERLIPIDAEMIA
     Dosage: ?          OTHER FREQUENCY:EVERY 2 WEEKS;?
     Route: 058
     Dates: start: 20191126
  10. AMLODIPINE [Concomitant]
     Active Substance: AMLODIPINE BESYLATE
  11. CARVEDILOL. [Concomitant]
     Active Substance: CARVEDILOL
  12. CLOPIDOGREL [Concomitant]
     Active Substance: CLOPIDOGREL BISULFATE
  13. MUPIROCIN. [Concomitant]
     Active Substance: MUPIROCIN
  14. DORZOLAMIDE [Concomitant]
     Active Substance: DORZOLAMIDE

REACTIONS (1)
  - Therapy cessation [None]
